FAERS Safety Report 14422380 (Version 4)
Quarter: 2018Q2

REPORT INFORMATION
  Report Type: Report from Study
  Country: None (occurrence: DE)
  Receive Date: 20180123
  Receipt Date: 20180418
  Transmission Date: 20180711
  Serious: Yes (Hospitalization)
  Sender: FDA-Public Use
  Company Number: DE-ABBVIE-18K-062-2210167-00

PATIENT
  Age: 77 Year
  Sex: Male

DRUGS (13)
  1. RIVASTIGMIN [Concomitant]
     Active Substance: RIVASTIGMINE
     Indication: PRODUCT USED FOR UNKNOWN INDICATION
  2. ACTRAPID [Concomitant]
     Active Substance: INSULIN HUMAN
     Indication: PRODUCT USED FOR UNKNOWN INDICATION
     Dosage: DOSE WILL BE ADJUSTED
     Route: 058
  3. DUODOPA [Suspect]
     Active Substance: CARBIDOPA\LEVODOPA
     Dosage: MD 4.5 ML; CRD 2.6 ML/H; CRN 0.8 ML/H, ED 1 ML
     Route: 050
     Dates: start: 201801, end: 2018
  4. LEVOCARB [Concomitant]
     Active Substance: CARBIDOPA\LEVODOPA
     Indication: PRODUCT USED FOR UNKNOWN INDICATION
     Dosage: 100/25MG
  5. TRIMIPRAMINE [Concomitant]
     Active Substance: TRIMIPRAMINE
     Indication: PRODUCT USED FOR UNKNOWN INDICATION
  6. DUODOPA [Suspect]
     Active Substance: CARBIDOPA\LEVODOPA
     Indication: PARKINSON^S DISEASE
     Dosage: MD 2.5 ML; CRD 2.0 ML/H; ED 1.5 ML
     Route: 050
     Dates: start: 20171227, end: 201801
  7. DUODOPA [Suspect]
     Active Substance: CARBIDOPA\LEVODOPA
     Dosage: MD 4.5 ML; CRD 2.3 ML/H; CRN 0.8 ML/H, ED 1 ML
     Route: 050
     Dates: start: 201801, end: 201801
  8. DUODOPA [Suspect]
     Active Substance: CARBIDOPA\LEVODOPA
     Dosage: MD: 4,5ML, CRD: 2,5ML/H, CRN: 1,0ML/H, ED: 0,8ML
     Route: 050
     Dates: start: 201802, end: 2018
  9. DUODOPA [Suspect]
     Active Substance: CARBIDOPA\LEVODOPA
     Dosage: MD: 4.5ML, CRD: 2.5ML/H, CRN: 1.3ML/H, ED: 0.9ML
     Route: 050
     Dates: start: 2018, end: 2018
  10. DUODOPA [Suspect]
     Active Substance: CARBIDOPA\LEVODOPA
     Dosage: MD: 4.5ML, CRD: 2.5ML/H, CRN: 1.5ML/H, ED: 0.9ML
     Route: 050
     Dates: start: 201803
  11. ARCOXIA [Concomitant]
     Active Substance: ETORICOXIB
     Indication: PRODUCT USED FOR UNKNOWN INDICATION
  12. DUODOPA [Suspect]
     Active Substance: CARBIDOPA\LEVODOPA
     Dosage: MD: 4,5ML, CRD: 2,5ML/H, CRN: 0,8ML/H, ED: 0,9ML
     Route: 050
     Dates: start: 2018, end: 201802
  13. ACTRAPHANE [Concomitant]
     Active Substance: INSULIN HUMAN
     Indication: PRODUCT USED FOR UNKNOWN INDICATION
     Route: 058

REACTIONS (5)
  - Intentional medical device removal by patient [Not Recovered/Not Resolved]
  - Mobility decreased [Not Recovered/Not Resolved]
  - Akinesia [Not Recovered/Not Resolved]
  - Wrong technique in device usage process [Unknown]
  - Hallucination [Recovering/Resolving]

NARRATIVE: CASE EVENT DATE: 20171227
